FAERS Safety Report 10495227 (Version 1)
Quarter: 2014Q3

REPORT INFORMATION
  Report Type: Spontaneous
  Country: US (occurrence: None)
  Receive Date: 20140815
  Receipt Date: 20140815
  Transmission Date: 20150326
  Serious: Yes (Other)
  Sender: FDA-Public Use
  Company Number: ADR-2008-4595

PATIENT
  Age: 56 Year
  Sex: Female

DRUGS (2)
  1. MORPHINE [Suspect]
     Active Substance: MORPHINE
  2. LIORESAL [Suspect]
     Active Substance: BACLOFEN
     Indication: MUSCLE SPASTICITY
     Route: 037

REACTIONS (8)
  - Fall [None]
  - Nausea [None]
  - Dizziness [None]
  - Withdrawal syndrome [None]
  - Vomiting [None]
  - Chills [None]
  - Hyperhidrosis [None]
  - Pain [None]

NARRATIVE: CASE EVENT DATE: 20061030
